FAERS Safety Report 14902070 (Version 1)
Quarter: 2018Q2

REPORT INFORMATION
  Report Type: Spontaneous
  Country: US (occurrence: US)
  Receive Date: 20180516
  Receipt Date: 20180516
  Transmission Date: 20180711
  Serious: No
  Sender: FDA-Public Use
  Company Number: US-MATRIXX INITIATIVES, INC.-2047924

PATIENT
  Age: 26 Year
  Sex: Female
  Weight: 68.18 kg

DRUGS (1)
  1. ZICAM COLD REMEDY MEDICATED FRUIT DROPS [Suspect]
     Active Substance: HOMEOPATHICS
     Indication: NASOPHARYNGITIS
     Route: 048
     Dates: start: 20180510, end: 20180514

REACTIONS (2)
  - Hyposmia [None]
  - Dysgeusia [None]
